FAERS Safety Report 17744956 (Version 1)
Quarter: 2020Q2

REPORT INFORMATION
  Report Type: Spontaneous
  Country: US (occurrence: US)
  Receive Date: 20200505
  Receipt Date: 20200505
  Transmission Date: 20200714
  Serious: No
  Sender: FDA-Public Use
  Company Number: None

PATIENT
  Age: 49 Year
  Sex: Male
  Weight: 85.5 kg

DRUGS (6)
  1. ADVAIR HFA [Concomitant]
     Active Substance: FLUTICASONE PROPIONATE\SALMETEROL XINAFOATE
  2. LIALDA [Concomitant]
     Active Substance: MESALAMINE
  3. MESALAMINE. [Suspect]
     Active Substance: MESALAMINE
     Indication: MANUFACTURING PRODUCT SHIPPING ISSUE
     Dosage: ?          QUANTITY:4 TABLET(S);?
     Route: 048
  4. OMEPRASOLE [Concomitant]
     Active Substance: OMEPRAZOLE
  5. IRON [Concomitant]
     Active Substance: IRON
  6. MERCAPTOPURINE. [Concomitant]
     Active Substance: MERCAPTOPURINE

REACTIONS (2)
  - Product quality issue [None]
  - Colitis ulcerative [None]

NARRATIVE: CASE EVENT DATE: 20200504
